FAERS Safety Report 8121413-0 (Version None)
Quarter: 2012Q1

REPORT INFORMATION
  Report Type: 
  Country: None (occurrence: None)
  Receive Date: 20120208
  Receipt Date: 20120131
  Transmission Date: 20120608
  Serious: No
  Sender: FDA-Public Use
  Company Number: US-PFIZER INC-2012026782

PATIENT
  Sex: Male
  Weight: 136 kg

DRUGS (2)
  1. SOMAVERT [Suspect]
     Dosage: 20 MG, 1X/DAY
     Route: 058
     Dates: start: 20111202
  2. SOMAVERT [Suspect]
     Indication: ACROMEGALY
     Dosage: 10 MG, 1X/DAY
     Route: 058
     Dates: start: 20110101, end: 20111201

REACTIONS (3)
  - INJECTION SITE PAIN [None]
  - INSULIN-LIKE GROWTH FACTOR INCREASED [None]
  - CONTUSION [None]
